FAERS Safety Report 11057526 (Version 2)
Quarter: 2015Q2

REPORT INFORMATION
  Report Type: Spontaneous
  Country: JP (occurrence: JP)
  Receive Date: 20150422
  Receipt Date: 20150505
  Transmission Date: 20150821
  Serious: Yes (Other)
  Sender: FDA-Public Use
  Company Number: GXJP2015JP000726

PATIENT
  Age: 59 Year
  Sex: Male
  Weight: 59 kg

DRUGS (3)
  1. CARBOPLATIN. [Suspect]
     Active Substance: CARBOPLATIN
     Indication: SMALL CELL LUNG CANCER
     Route: 042
  2. ETOPOSIDE. [Suspect]
     Active Substance: ETOPOSIDE
     Indication: SMALL CELL LUNG CANCER
     Route: 042
  3. PYRIDOSTIGMINE BR [Concomitant]
     Indication: PRODUCT USED FOR UNKNOWN INDICATION
     Route: 065

REACTIONS (7)
  - Neutropenia [Recovered/Resolved]
  - Myasthenic syndrome [Recovered/Resolved]
  - Productive cough [Recovered/Resolved]
  - Infection [Recovered/Resolved]
  - Concomitant disease aggravated [Recovered/Resolved]
  - Pneumonia [Recovered/Resolved]
  - Atelectasis [Recovered/Resolved]
